FAERS Safety Report 8397059-6 (Version None)
Quarter: 2012Q2

REPORT INFORMATION
  Report Type: 
  Country: None (occurrence: None)
  Receive Date: 20120530
  Receipt Date: 20110727
  Transmission Date: 20120825
  Serious: Yes (Other)
  Sender: FDA-Public Use
  Company Number: TR-CELGENEUS-161-21880-11093706

PATIENT
  Age: 51 Year
  Sex: Female
  Weight: 72 kg

DRUGS (5)
  1. HEPARIN [Concomitant]
     Indication: PROPHYLAXIS
     Route: 065
  2. ZOLEDRONOC ACID [Concomitant]
     Indication: PROPHYLAXIS
     Route: 065
  3. NEUPOGEN [Concomitant]
     Indication: PROPHYLAXIS
     Route: 065
  4. REVLIMID [Suspect]
     Indication: MULTIPLE MYELOMA
     Dosage: 25 MILLIGRAM
     Route: 048
  5. DEXAMETHASONE [Concomitant]
     Indication: MULTIPLE MYELOMA
     Dosage: 40 MILLIGRAM
     Route: 065

REACTIONS (2)
  - CARDIAC DISORDER [None]
  - NEUROPATHY PERIPHERAL [None]
